FAERS Safety Report 8889267 (Version 3)
Quarter: 2012Q4

REPORT INFORMATION
  Report Type: 
  Country: JP (occurrence: JP)
  Receive Date: 20121106
  Receipt Date: 20121212
  Transmission Date: 20130627
  Serious: Yes (Other)
  Sender: FDA-Public Use
  Company Number: JP-JNJFOC-20121101235

PATIENT
  Age: 87 Year
  Sex: Female

DRUGS (2)
  1. TRAMCET [Suspect]
     Indication: PAIN
     Dosage: 1 per 1 day
     Route: 048
     Dates: start: 20121022, end: 20121026
  2. TRAMCET [Suspect]
     Indication: PAIN
     Dosage: 1 per 1 day
     Route: 048
     Dates: start: 20121027

REACTIONS (2)
  - Delusion [Recovered/Resolved]
  - Abnormal behaviour [Recovered/Resolved]
